FAERS Safety Report 24451194 (Version 1)
Quarter: 2024Q4

REPORT INFORMATION
  Report Type: Spontaneous
  Country: US (occurrence: US)
  Receive Date: 20241017
  Receipt Date: 20241017
  Transmission Date: 20250114
  Serious: No
  Sender: WAYLIS THERAPEUTICS
  Company Number: US-WAYLIS-2024-US-034628

PATIENT
  Age: 74 Year
  Sex: Male
  Weight: 91.63 kg

DRUGS (1)
  1. COREG [Suspect]
     Active Substance: CARVEDILOL
     Indication: Hypertension
     Dosage: 3.125MG 2X/D, THEN 6.25MG 2X/D
     Route: 048
     Dates: start: 202208

REACTIONS (2)
  - Hyperhidrosis [Not Recovered/Not Resolved]
  - Hypoacusis [Not Recovered/Not Resolved]

NARRATIVE: CASE EVENT DATE: 20230701
